FAERS Safety Report 5352369-1 (Version None)
Quarter: 2007Q2

REPORT INFORMATION
  Report Type: 
  Country: None (occurrence: None)
  Receive Date: 20070607
  Receipt Date: 20070523
  Transmission Date: 20071010
  Serious: Yes (Congenital Anomaly, Other)
  Sender: FDA-Public Use
  Company Number: 009175

PATIENT
  Age: 31 Year
  Sex: Female
  Weight: 60.5 kg

DRUGS (8)
  1. DIDANOSINE [Suspect]
     Indication: RETROVIRAL INFECTION
     Dosage: 250 MG, QD, ORAL
     Route: 048
     Dates: start: 20040901
  2. NORVIR [Suspect]
     Indication: RETROVIRAL INFECTION
     Dosage: 100 MG/DAY, ORAL
     Route: 048
  3. FUZEON [Suspect]
     Indication: RETROVIRAL INFECTION
     Dosage: 90 MG, BID, SUBCUTANEOUS
     Route: 058
  4. VALGANCICLOVIR HCL [Suspect]
     Indication: CYTOMEGALOVIRUS TEST
     Dates: start: 20040901
  5. REYATAZ(ATAZANVIR) [Suspect]
     Indication: RETROVIRAL INFECTION
     Dosage: 300 MG/DAY, ORAL
     Route: 048
  6. EPIVIR [Suspect]
     Indication: RETROVIRAL INFECTION
  7. COTRIM [Suspect]
     Indication: PROPHYLAXIS
     Dates: start: 20040101
  8. LAMIVUDINE [Suspect]
     Dosage: 300 MG/DAY, ORAL
     Route: 048

REACTIONS (5)
  - ABORTION SPONTANEOUS [None]
  - DRUG EXPOSURE DURING PREGNANCY [None]
  - INTRA-UTERINE DEATH [None]
  - PLACENTAL INFARCTION [None]
  - UMBILICAL CORD ABNORMALITY [None]
